FAERS Safety Report 8182864-1 (Version None)
Quarter: 2012Q1

REPORT INFORMATION
  Report Type: 
  Country: None (occurrence: None)
  Receive Date: 20120126
  Receipt Date: 20111019
  Transmission Date: 20120608
  Serious: Yes (Other)
  Sender: FDA-Public Use
  Company Number: PHEH2011US07307

PATIENT
  Age: 89 Year
  Sex: Male

DRUGS (1)
  1. AFINITOR [Suspect]
     Indication: MALIGNANT NEOPLASM OF ISLETS OF LANGERHANS
     Dosage: 5 MG, DAILY, ORAL
     Route: 048
     Dates: start: 20110803, end: 20111005

REACTIONS (3)
  - BLOOD GLUCOSE INCREASED [None]
  - FULL BLOOD COUNT DECREASED [None]
  - RENAL DISORDER [None]
